FAERS Safety Report 8171826-6 (Version None)
Quarter: 2012Q1

REPORT INFORMATION
  Report Type: 
  Country: None (occurrence: None)
  Receive Date: 20120228
  Receipt Date: 20120223
  Transmission Date: 20120608
  Serious: Yes (Other)
  Sender: FDA-Public Use
  Company Number: US-TEVA-324327USA

PATIENT
  Sex: Male

DRUGS (7)
  1. COENZYME Q10 [Concomitant]
     Indication: MEDICAL DIET
  2. SINEMET [Concomitant]
     Indication: PARKINSON'S DISEASE
     Route: 048
  3. LEVOTHYROXINE SODIUM [Concomitant]
     Indication: HYPOTHYROIDISM
     Dosage: 50 MICROGRAM;
     Route: 048
  4. LECITHIN [Concomitant]
     Indication: MEDICAL DIET
     Dosage: 200 MILLIGRAM;
     Route: 048
  5. AZILECT [Suspect]
     Indication: PARKINSON'S DISEASE
     Dosage: 1 MILLIGRAM;
     Route: 048
  6. SINEMET CR [Concomitant]
     Indication: PARKINSON'S DISEASE
     Route: 048
  7. LISINOPRIL [Concomitant]
     Dosage: 20 MILLIGRAM;
     Route: 048

REACTIONS (1)
  - LIP SWELLING [None]
